FAERS Safety Report 9748567 (Version 1)
Quarter: 2013Q4

REPORT INFORMATION
  Report Type: Spontaneous
  Country: JP (occurrence: None)
  Receive Date: 20131209
  Receipt Date: 20131209
  Transmission Date: 20140711
  Serious: Yes (Other)
  Sender: FDA-Public Use
  Company Number: AE-SPE-2013-031

PATIENT
  Sex: Female

DRUGS (1)
  1. MEIACT MS [Suspect]
     Indication: NASOPHARYNGITIS
     Route: 048

REACTIONS (2)
  - Enterocolitis haemorrhagic [None]
  - Presyncope [None]
